FAERS Safety Report 9106527 (Version 2)
Quarter: 2013Q1

REPORT INFORMATION
  Report Type: Report from Study
  Country: JP (occurrence: JP)
  Receive Date: 20130221
  Receipt Date: 20130311
  Transmission Date: 20140127
  Serious: Yes (Death, Life-Threatening)
  Sender: FDA-Public Use
  Company Number: JP-ACTELION-A-CH2013-79430

PATIENT
  Age: 1 Year
  Sex: Female
  Weight: 8.4 kg

DRUGS (7)
  1. TRACLEER [Suspect]
     Indication: PULMONARY ARTERIAL HYPERTENSION
     Dosage: 7.8 MG, BID
     Route: 048
     Dates: start: 20120606, end: 20120627
  2. TRACLEER [Suspect]
     Dosage: 15.6 MG, BID
     Route: 048
     Dates: start: 20120628, end: 20120704
  3. BERAPROST SODIUM [Concomitant]
  4. SILDENAFIL CITRATE [Concomitant]
  5. FUROSEMIDE [Concomitant]
  6. ASPIRIN [Concomitant]
  7. OXYGEN [Concomitant]

REACTIONS (4)
  - Sepsis [Fatal]
  - White blood cell count increased [Fatal]
  - Cardiac failure [Fatal]
  - Concomitant disease aggravated [Fatal]
